FAERS Safety Report 12989775 (Version 2)
Quarter: 2016Q4

REPORT INFORMATION
  Report Type: Spontaneous
  Country: US (occurrence: US)
  Receive Date: 20161201
  Receipt Date: 20161209
  Transmission Date: 20170207
  Serious: No
  Sender: FDA-Public Use
  Company Number: US-HORIZON-PEN-0559-2016

PATIENT
  Age: 41 Year
  Sex: Female

DRUGS (9)
  1. ADDERALL [Concomitant]
     Active Substance: AMPHETAMINE ASPARTATE\AMPHETAMINE SULFATE\DEXTROAMPHETAMINE SACCHARATE\DEXTROAMPHETAMINE SULFATE
     Dosage: 20 MG
  2. TIZANIDINE. [Concomitant]
     Active Substance: TIZANIDINE
     Dosage: 2 MG
  3. VITAMIN D2 [Concomitant]
     Active Substance: ERGOCALCIFEROL
     Dosage: 50000 U
  4. ROBINUL FORTE [Concomitant]
     Active Substance: GLYCOPYRROLATE
     Dosage: 2 MG
  5. PENNSAID [Suspect]
     Active Substance: DICLOFENAC SODIUM
     Indication: MUSCLE STRAIN
     Dosage: 2 PUMPS BID
     Dates: start: 20161118, end: 20161122
  6. METOPROLOL. [Concomitant]
     Active Substance: METOPROLOL
     Dosage: 25 MG
  7. PROTONIX [Concomitant]
     Active Substance: PANTOPRAZOLE SODIUM
     Dosage: 40 MG
  8. VALSARTAN. [Concomitant]
     Active Substance: VALSARTAN
     Dosage: 320 MG
  9. POTASSIUM [Concomitant]
     Active Substance: POTASSIUM
     Dosage: 20 MMOL

REACTIONS (2)
  - Off label use [Unknown]
  - Rash [Unknown]
